FAERS Safety Report 26183600 (Version 1)
Quarter: 2025Q4

REPORT INFORMATION
  Report Type: Spontaneous
  Country: US (occurrence: US)
  Receive Date: 20251221
  Receipt Date: 20251221
  Transmission Date: 20260118
  Serious: Yes (Hospitalization)
  Sender: TEVA
  Company Number: US-TEVA-VS-3403731

PATIENT
  Age: 30 Year
  Sex: Female

DRUGS (1)
  1. LIDOCAINE [Suspect]
     Active Substance: LIDOCAINE
     Indication: Pain management
     Route: 061

REACTIONS (5)
  - Local anaesthetic systemic toxicity [Recovering/Resolving]
  - Agitation [Recovered/Resolved]
  - Paranoia [Recovering/Resolving]
  - Neuropsychological symptoms [Recovering/Resolving]
  - Hallucination, auditory [Recovering/Resolving]
